FAERS Safety Report 14020771 (Version 1)
Quarter: 2017Q3

REPORT INFORMATION
  Report Type: Spontaneous
  Country: EE (occurrence: EE)
  Receive Date: 20170928
  Receipt Date: 20170928
  Transmission Date: 20171128
  Serious: Yes (Hospitalization)
  Sender: FDA-Public Use
  Company Number: EE-B.I. PHARMACEUTICALS,INC./RIDGEFIELD-2017-45-000002

PATIENT
  Age: 68 Year
  Sex: Female
  Weight: 95 kg

DRUGS (2)
  1. TRAJENTA [Suspect]
     Active Substance: LINAGLIPTIN
     Indication: TYPE 2 DIABETES MELLITUS
     Route: 048
     Dates: start: 20140904, end: 20170519
  2. METFORMIN [Concomitant]
     Active Substance: METFORMIN HYDROCHLORIDE
     Indication: TYPE 2 DIABETES MELLITUS
     Route: 048

REACTIONS (4)
  - Skin plaque [Recovered/Resolved]
  - Blister [Recovered/Resolved]
  - Pemphigoid [Recovered/Resolved]
  - Skin erosion [Recovered/Resolved]

NARRATIVE: CASE EVENT DATE: 20170501
